FAERS Safety Report 18204959 (Version 5)
Quarter: 2020Q3

REPORT INFORMATION
  Report Type: Spontaneous
  Country: US (occurrence: US)
  Receive Date: 20200828
  Receipt Date: 20200921
  Transmission Date: 20201103
  Serious: Yes (Other)
  Sender: FDA-Public Use
  Company Number: US-SA-2020SA215696

PATIENT

DRUGS (3)
  1. CABLIVI [Suspect]
     Active Substance: CAPLACIZUMAB-YHDP
     Dosage: 11 MG
     Route: 058
     Dates: start: 20200822
  2. RITUXAN [Concomitant]
     Active Substance: RITUXIMAB
  3. CABLIVI [Suspect]
     Active Substance: CAPLACIZUMAB-YHDP
     Indication: THROMBOTIC MICROANGIOPATHY
     Dosage: 11 MG
     Route: 058
     Dates: start: 20200721

REACTIONS (9)
  - Haemorrhage [Unknown]
  - ADAMTS13 activity decreased [Unknown]
  - Platelet count abnormal [Unknown]
  - Injection site bruising [Unknown]
  - Epistaxis [Unknown]
  - Anaphylactic reaction [Unknown]
  - Injection site haemorrhage [Unknown]
  - Feeling hot [Recovered/Resolved]
  - Feeling abnormal [Unknown]

NARRATIVE: CASE EVENT DATE: 202009
